FAERS Safety Report 5869553-0 (Version None)
Quarter: 2008Q3

REPORT INFORMATION
  Report Type: 
  Country: None (occurrence: None)
  Receive Date: 20080904
  Receipt Date: 20080825
  Transmission Date: 20090109
  Serious: Yes (Life-Threatening, Hospitalization, Other)
  Sender: FDA-Public Use
  Company Number: JP-JNJFOC-20080405697

PATIENT
  Sex: Male

DRUGS (8)
  1. REMICADE [Suspect]
     Indication: INFLAMMATORY BOWEL DISEASE
     Route: 042
  2. ALFAROL [Concomitant]
     Indication: DRUG USE FOR UNKNOWN INDICATION
     Route: 048
  3. VITAMIN K TAB [Concomitant]
     Indication: DRUG USE FOR UNKNOWN INDICATION
  4. PENTASA [Concomitant]
  5. COTRIM [Concomitant]
     Dosage: 2 TIMES/W (1 TAB IN THE MORNING, 0.5 TAB IN THE EVENING)
     Route: 048
  6. GLAKAY [Concomitant]
     Route: 048
  7. CORTRIL [Concomitant]
     Dosage: EVERY OTHER DAY
     Route: 048
  8. ENSURE [Concomitant]
     Route: 048

REACTIONS (3)
  - CALCULUS URINARY [None]
  - DISSEMINATED INTRAVASCULAR COAGULATION [None]
  - SEPSIS [None]
